FAERS Safety Report 5613748-8 (Version None)
Quarter: 2008Q1

REPORT INFORMATION
  Report Type: 
  Country: None (occurrence: None)
  Receive Date: 20080130
  Receipt Date: 20080118
  Transmission Date: 20080703
  Serious: Yes (Other)
  Sender: FDA-Public Use
  Company Number: 08H_163-0313759-00

PATIENT

DRUGS (1)
  1. HEPARIN SODIUM [Suspect]
     Indication: DRUG USE FOR UNKNOWN INDICATION
     Dosage: INTRA-ARTERIAL
     Route: 013

REACTIONS (4)
  - INFUSION SITE NECROSIS [None]
  - INJECTION SITE ERYTHEMA [None]
  - INJECTION SITE PALLOR [None]
  - INJECTION SITE VESICLES [None]
